FAERS Safety Report 21009422 (Version 1)
Quarter: 2022Q2

REPORT INFORMATION
  Report Type: Spontaneous
  Country: US (occurrence: US)
  Receive Date: 20220627
  Receipt Date: 20220627
  Transmission Date: 20220721
  Serious: No
  Sender: FDA-Public Use
  Company Number: US-PERRIGO-22US005536

PATIENT
  Age: 70 Year
  Sex: Female

DRUGS (3)
  1. LORATADINE [Suspect]
     Active Substance: LORATADINE
     Indication: Hypersensitivity
     Dosage: 5 MG, SINGLE
     Route: 048
     Dates: start: 20220329, end: 20220329
  2. LORATADINE [Suspect]
     Active Substance: LORATADINE
     Indication: Pruritus
  3. LORATADINE [Suspect]
     Active Substance: LORATADINE
     Indication: Nasopharyngitis

REACTIONS (6)
  - Feeling abnormal [Recovering/Resolving]
  - Feeling drunk [Recovering/Resolving]
  - Urine output increased [Recovering/Resolving]
  - Off label use [Recovering/Resolving]
  - Underdose [Recovering/Resolving]
  - Wrong technique in product usage process [Recovering/Resolving]

NARRATIVE: CASE EVENT DATE: 20220329
